FAERS Safety Report 6978018-4 (Version None)
Quarter: 2010Q3

REPORT INFORMATION
  Report Type: 
  Country: None (occurrence: None)
  Receive Date: 20100913
  Receipt Date: 20100907
  Transmission Date: 20110219
  Serious: No
  Sender: FDA-Public Use
  Company Number: US-PFIZER INC-2010112923

PATIENT

DRUGS (1)
  1. CLINDAMYCIN PHOSPHATE [Suspect]

REACTIONS (2)
  - DRUG HYPERSENSITIVITY [None]
  - DRY SKIN [None]
